FAERS Safety Report 9010900 (Version 1)
Quarter: 2013Q1

REPORT INFORMATION
  Report Type: Report from Study
  Country: US (occurrence: US)
  Receive Date: 20130109
  Receipt Date: 20130109
  Transmission Date: 20140127
  Serious: Yes (Other)
  Sender: FDA-Public Use
  Company Number: US-JNJFOC-20130101740

PATIENT
  Age: 19 Year
  Sex: Female

DRUGS (1)
  1. REMICADE [Suspect]
     Indication: COLITIS ULCERATIVE
     Route: 042

REACTIONS (7)
  - Anaemia [Unknown]
  - Drug specific antibody present [Unknown]
  - Presyncope [Unknown]
  - Pain [Unknown]
  - Drug ineffective [Unknown]
  - Nausea [Unknown]
  - Fatigue [Unknown]
